FAERS Safety Report 19417798 (Version 1)
Quarter: 2021Q2

REPORT INFORMATION
  Report Type: Spontaneous
  Country: US (occurrence: US)
  Receive Date: 20210615
  Receipt Date: 20210615
  Transmission Date: 20210717
  Serious: No
  Sender: FDA-Public Use
  Company Number: US-CELGENEUS-USA-20210601925

PATIENT
  Age: 74 Year
  Sex: Male
  Weight: 86.26 kg

DRUGS (2)
  1. ONUREG [Suspect]
     Active Substance: AZACITIDINE
     Indication: PLASMA CELL MYELOMA
     Dosage: 300 MILLIGRAM
     Route: 048
     Dates: start: 20210317
  2. ONUREG [Suspect]
     Active Substance: AZACITIDINE
     Dosage: DOSE REDUCED
     Route: 048
     Dates: start: 2021

REACTIONS (2)
  - Leukopenia [Unknown]
  - Platelet count increased [Unknown]

NARRATIVE: CASE EVENT DATE: 20210526
